FAERS Safety Report 5272193-8 (Version None)
Quarter: 2007Q1

REPORT INFORMATION
  Report Type: 
  Country: None (occurrence: None)
  Receive Date: 20070319
  Receipt Date: 20070313
  Transmission Date: 20070707
  Serious: Yes (Death)
  Sender: FDA-Public Use
  Company Number: 238217

PATIENT
  Sex: 0

DRUGS (1)
  1. TNKASE [Suspect]
     Indication: ISCHAEMIC STROKE
     Dosage: 0.9 MG/KG, SINGLE, INTRAVENOUS
     Route: 042
     Dates: start: 20070313, end: 20070313

REACTIONS (4)
  - PULMONARY HAEMORRHAGE [None]
  - RENAL FAILURE [None]
  - VENTRICULAR FIBRILLATION [None]
  - WRONG DRUG ADMINISTERED [None]
